FAERS Safety Report 19171165 (Version 2)
Quarter: 2021Q2

REPORT INFORMATION
  Report Type: Spontaneous
  Country: CZ (occurrence: CZ)
  Receive Date: 20210422
  Receipt Date: 20210504
  Transmission Date: 20210717
  Serious: Yes (Death, Hospitalization)
  Sender: FDA-Public Use
  Company Number: CZ-ELI_LILLY_AND_COMPANY-CZ202104009363

PATIENT
  Sex: Male

DRUGS (1)
  1. BAMLANIVIMAB. [Suspect]
     Active Substance: BAMLANIVIMAB
     Indication: COVID-19
     Dosage: 700 MG, SINGLE
     Route: 042

REACTIONS (6)
  - Tremor [Unknown]
  - Chills [Unknown]
  - Nervous system disorder [Unknown]
  - Renal impairment [Unknown]
  - Decreased appetite [Unknown]
  - COVID-19 [Fatal]
